FAERS Safety Report 16906833 (Version 2)
Quarter: 2020Q1

REPORT INFORMATION
  Report Type: Spontaneous
  Country: BR (occurrence: BR)
  Receive Date: 20191011
  Receipt Date: 20200302
  Transmission Date: 20200409
  Serious: Yes (Other)
  Sender: FDA-Public Use
  Company Number: BR-TEVA-2019-BR-1120336

PATIENT
  Age: 72 Year
  Sex: Female
  Weight: 59 kg

DRUGS (4)
  1. GINKGO BILOBA [Concomitant]
     Active Substance: GINKGO
     Indication: CEREBROVASCULAR DISORDER
     Dosage: 80 MILLIGRAM DAILY; SINCE 1 MONTH AGO
     Route: 065
  2. ARADOIS [Concomitant]
     Active Substance: LOSARTAN POTASSIUM
     Indication: HYPERTENSION
     Dosage: 25 MILLIGRAM DAILY; SINCE MORE THAN 1 YEAR AGO
     Route: 065
  3. AZILECT [Suspect]
     Active Substance: RASAGILINE MESYLATE
     Indication: TREMOR
     Dosage: 1 MILLIGRAM DAILY;
     Route: 048
     Dates: start: 2017
  4. LEXOTAN [Concomitant]
     Active Substance: BROMAZEPAM
     Indication: STRESS
     Dosage: 3 MG A HALF TABLET PER NIGHT, SINCE 30 YEARS AGO
     Route: 065

REACTIONS (5)
  - Dizziness [Not Recovered/Not Resolved]
  - Labyrinthitis [Not Recovered/Not Resolved]
  - Parkinson^s disease [Not Recovered/Not Resolved]
  - Tremor [Not Recovered/Not Resolved]
  - Headache [Not Recovered/Not Resolved]
